FAERS Safety Report 4545013-4 (Version None)
Quarter: 2005Q1

REPORT INFORMATION
  Report Type: 
  Country: None (occurrence: None)
  Receive Date: 20050105
  Receipt Date: 20041209
  Transmission Date: 20050727
  Serious: Yes (Other)
  Sender: FDA-Public Use
  Company Number: 200404673

PATIENT
  Age: 80 Year
  Sex: Male

DRUGS (6)
  1. TAGAMET [Suspect]
     Indication: LARGE INTESTINE CARCINOMA
     Dosage: 400MG PER DAY
     Route: 065
     Dates: start: 20041007, end: 20041130
  2. ISOVORIN [Concomitant]
     Dates: start: 20041111
  3. FLUOROURACIL [Concomitant]
     Dates: start: 20041111
  4. PASIL [Concomitant]
     Dates: start: 20041029
  5. THEO-DUR [Concomitant]
     Dates: start: 20041030
  6. MUCODYNE [Concomitant]
     Dates: start: 20041111

REACTIONS (4)
  - ERYTHROPENIA [None]
  - HAEMATOCRIT DECREASED [None]
  - HAEMOGLOBIN DECREASED [None]
  - RED BLOOD CELL COUNT DECREASED [None]
